FAERS Safety Report 10314971 (Version 1)
Quarter: 2014Q3

REPORT INFORMATION
  Report Type: Spontaneous
  Country: CL (occurrence: CL)
  Receive Date: 20140718
  Receipt Date: 20140718
  Transmission Date: 20150326
  Serious: Yes (Other)
  Sender: FDA-Public Use
  Company Number: CL-ABBVIE-14P-034-1261270-00

PATIENT
  Age: 9 Year
  Sex: Female
  Weight: 36 kg

DRUGS (3)
  1. VALCOTE SPRINKLE [Suspect]
     Active Substance: VALPROATE SODIUM
     Dates: start: 201407
  2. VALCOTE SPRINKLE [Suspect]
     Active Substance: VALPROATE SODIUM
     Dates: end: 201406
  3. VALCOTE SPRINKLE [Suspect]
     Active Substance: VALPROATE SODIUM
     Indication: EPILEPSY
     Route: 048
     Dates: start: 20140609

REACTIONS (2)
  - Pancreatitis acute [Recovered/Resolved]
  - Anticonvulsant drug level increased [Recovered/Resolved]

NARRATIVE: CASE EVENT DATE: 20140702
